FAERS Safety Report 23787654 (Version 1)
Quarter: 2024Q2

REPORT INFORMATION
  Report Type: Spontaneous
  Country: US (occurrence: None)
  Receive Date: 20240425
  Receipt Date: 20240425
  Transmission Date: 20240716
  Serious: Yes (Hospitalization)
  Sender: FDA-Public Use
  Company Number: None

PATIENT
  Age: 81 Year
  Sex: Male

DRUGS (1)
  1. CEFTRIAXONE SODIUM [Suspect]
     Active Substance: CEFTRIAXONE SODIUM
     Indication: Drug therapy
     Dates: start: 20230425

REACTIONS (5)
  - Anaphylactic reaction [None]
  - Cyanosis [None]
  - Oxygen saturation decreased [None]
  - Wheezing [None]
  - Acute respiratory failure [None]

NARRATIVE: CASE EVENT DATE: 20230425
